FAERS Safety Report 5521047-8 (Version None)
Quarter: 2007Q4

REPORT INFORMATION
  Report Type: 
  Country: None (occurrence: None)
  Receive Date: 20071119
  Receipt Date: 20071108
  Transmission Date: 20080405
  Serious: Yes (Hospitalization)
  Sender: FDA-Public Use
  Company Number: US-JNJFOC-20071103540

PATIENT
  Sex: Female

DRUGS (11)
  1. FENTANYL TRANSDERMAL SYSTEM [Suspect]
     Route: 062
  2. FENTANYL TRANSDERMAL SYSTEM [Suspect]
     Indication: PAIN
     Route: 062
  3. FENTANYL TRANSDERMAL SYSTEM [Suspect]
     Indication: PAIN
     Route: 062
  4. COUMADIN [Concomitant]
     Dosage: ALTERNATING
     Route: 048
  5. COUMADIN [Concomitant]
     Indication: CARDIAC DISORDER
     Dosage: ALTERNATING
     Route: 048
  6. TOPROL-XL [Concomitant]
     Route: 048
  7. TOPROL-XL [Concomitant]
     Indication: CARDIAC DISORDER
     Dosage: IN THE MORNING
     Route: 048
  8. LASIX [Concomitant]
     Indication: CARDIAC DISORDER
     Route: 048
  9. SPIRONOLACTONE [Concomitant]
     Indication: CARDIAC DISORDER
     Route: 048
  10. HYDROXYCHLOROQUINE SULFATE [Concomitant]
     Indication: RHEUMATOID ARTHRITIS
     Dosage: EVERY 4-6 HOURS AS NEEDED
     Route: 048
  11. POTASSIUM CHLORIDE [Concomitant]
     Indication: PAIN
     Route: 048

REACTIONS (5)
  - ANTICOAGULANT THERAPY [None]
  - HIP ARTHROPLASTY [None]
  - MITRAL VALVE REPLACEMENT [None]
  - TRICUSPID VALVE REPLACEMENT [None]
  - WRONG TECHNIQUE IN DRUG USAGE PROCESS [None]
